FAERS Safety Report 20422770 (Version 1)
Quarter: 2022Q1

REPORT INFORMATION
  Report Type: Report from Study
  Country: US (occurrence: US)
  Receive Date: 20220203
  Receipt Date: 20220203
  Transmission Date: 20220424
  Serious: Yes (Other)
  Sender: FDA-Public Use
  Company Number: US-MYLANLABS-2022M1009930

PATIENT
  Sex: Female

DRUGS (3)
  1. BUDESONIDE [Suspect]
     Active Substance: BUDESONIDE
     Indication: Colitis microscopic
     Dosage: UNK, MAXIMUM DOSE
     Route: 065
  2. IMODIUM [Suspect]
     Active Substance: LOPERAMIDE HYDROCHLORIDE
     Indication: Colitis microscopic
     Dosage: UNK
     Route: 065
  3. VEDOLIZUMAB [Suspect]
     Active Substance: VEDOLIZUMAB
     Indication: Colitis microscopic
     Dosage: 300 MILLIGRAM, AT WEEK 0, 2 AND 6, AND THEN EVERY 8 WEEKS
     Route: 042

REACTIONS (1)
  - Drug ineffective [Unknown]
